FAERS Safety Report 8308772-0 (Version None)
Quarter: 2012Q2

REPORT INFORMATION
  Report Type: 
  Country: None (occurrence: None)
  Receive Date: 20120424
  Receipt Date: 20120419
  Transmission Date: 20120825
  Serious: Yes (Death)
  Sender: FDA-Public Use
  Company Number: US-PFIZER INC-2012097866

PATIENT
  Age: 24 Year
  Sex: Male

DRUGS (5)
  1. CLONAZEPAM [Suspect]
     Dosage: UNK
  2. XANAX [Suspect]
     Dosage: UNK
     Route: 048
  3. METHADON HCL TAB [Suspect]
     Dosage: UNK
  4. OXYCODONE HCL [Suspect]
     Dosage: UNK
  5. OXYCONTIN [Suspect]
     Dosage: UNK

REACTIONS (1)
  - DRUG ABUSE [None]
